FAERS Safety Report 6025185-5 (Version None)
Quarter: 2008Q4

REPORT INFORMATION
  Report Type: 
  Country: None (occurrence: None)
  Receive Date: 20081231
  Receipt Date: 20081222
  Transmission Date: 20090506
  Serious: Yes (Hospitalization)
  Sender: FDA-Public Use
  Company Number: US-BAXTER-2008BH014187

PATIENT
  Age: 86 Year
  Sex: Male

DRUGS (2)
  1. DIANEAL [Suspect]
     Indication: PERITONEAL DIALYSIS
     Route: 033
     Dates: start: 20081001, end: 20081218
  2. DIANEAL [Suspect]
     Route: 033
     Dates: start: 20080624, end: 20080701

REACTIONS (2)
  - INGUINAL HERNIA [None]
  - SCROTAL SWELLING [None]
